FAERS Safety Report 11743561 (Version 3)
Quarter: 2016Q2

REPORT INFORMATION
  Report Type: Report from Study
  Country: JP (occurrence: JP)
  Receive Date: 20151116
  Receipt Date: 20160510
  Transmission Date: 20160815
  Serious: Yes (Hospitalization)
  Sender: FDA-Public Use
  Company Number: PHJP2015JP019834

PATIENT
  Age: 77 Year
  Sex: Male
  Weight: 50 kg

DRUGS (2)
  1. SEEBRI BREEZHALER CAPSUL [Suspect]
     Active Substance: GLYCOPYRROLATE
     Indication: EMPHYSEMA
  2. SEEBRI BREEZHALER CAPSUL [Suspect]
     Active Substance: GLYCOPYRROLATE
     Indication: CHRONIC OBSTRUCTIVE PULMONARY DISEASE
     Dosage: 50 UG, QD
     Route: 055
     Dates: start: 20140502, end: 20140509

REACTIONS (12)
  - Sputum increased [Recovered/Resolved]
  - Cough [Recovered/Resolved]
  - Heart rate increased [Recovered/Resolved]
  - Sputum purulent [Recovered/Resolved]
  - Atrial fibrillation [Recovered/Resolved]
  - Dyspnoea [Recovered/Resolved]
  - Respiratory tract infection [Recovered/Resolved]
  - White blood cell count increased [Unknown]
  - Chronic obstructive pulmonary disease [Recovered/Resolved]
  - Wheezing [Recovered/Resolved]
  - Respiratory rate increased [Recovered/Resolved]
  - C-reactive protein increased [Unknown]

NARRATIVE: CASE EVENT DATE: 20140509
